FAERS Safety Report 6633983-X (Version None)
Quarter: 2010Q1

REPORT INFORMATION
  Report Type: 
  Country: None (occurrence: None)
  Receive Date: 20100315
  Receipt Date: 20100301
  Transmission Date: 20100710
  Serious: Yes (Hospitalization)
  Sender: FDA-Public Use
  Company Number: PHHY2010DE12381

PATIENT
  Sex: Male
  Weight: 130 kg

DRUGS (9)
  1. ALISKIREN ALI+ [Suspect]
     Indication: HYPERTENSION
     Dosage: 300 MG, QD
     Route: 048
     Dates: start: 20090312
  2. HYDROCHLOROTHIAZIDE [Suspect]
     Dosage: UNK
     Dates: end: 20090319
  3. BELOC ZOK [Suspect]
     Dosage: 95 MG, QD
     Dates: start: 20090118
  4. SIMVASTATIN [Suspect]
     Dosage: 20 MG, QD
     Dates: start: 20080203
  5. NORVASC [Suspect]
     Dosage: 5 MG/DAY
     Dates: start: 20090320
  6. TORSEMIDE [Suspect]
     Dosage: 10 MG, QD
     Dates: start: 20090320
  7. ENALAPRIL MALEATE [Suspect]
     Dosage: 10 MG/D
     Dates: start: 20090320
  8. ACE INHIBITOR NOS [Concomitant]
     Dosage: UNK
     Dates: end: 20090319
  9. AMLODIPINE [Concomitant]
     Dosage: UNK
     Dates: end: 20090319

REACTIONS (6)
  - ANGINA PECTORIS [None]
  - BLOOD PRESSURE INCREASED [None]
  - ELECTROCARDIOGRAM QRS COMPLEX PROLONGED [None]
  - HYPERCHOLESTEROLAEMIA [None]
  - HYPERTENSIVE CRISIS [None]
  - HYPERURICAEMIA [None]
